FAERS Safety Report 8058578-5 (Version None)
Quarter: 2012Q1

REPORT INFORMATION
  Report Type: 
  Country: None (occurrence: None)
  Receive Date: 20120120
  Receipt Date: 20120113
  Transmission Date: 20120608
  Serious: Yes (Other)
  Sender: FDA-Public Use
  Company Number: FR-JNJFOC-20120106485

PATIENT
  Sex: Male

DRUGS (3)
  1. HALDOL [Suspect]
     Indication: PRODUCT USED FOR UNKNOWN INDICATION
     Route: 065
     Dates: start: 20090101
  2. EQUANIL [Concomitant]
     Dates: start: 20090101
  3. VALIUM [Concomitant]
     Dates: start: 20090101

REACTIONS (1)
  - RHABDOMYOLYSIS [None]
